FAERS Safety Report 9143323 (Version 2)
Quarter: 2013Q2

REPORT INFORMATION
  Report Type: Spontaneous
  Country: US (occurrence: US)
  Receive Date: 20130306
  Receipt Date: 20130411
  Transmission Date: 20140414
  Serious: Yes (Other)
  Sender: FDA-Public Use
  Company Number: US-SANOFI-AVENTIS-2013SA011550

PATIENT
  Age: 52 Year
  Sex: Female

DRUGS (1)
  1. AUBAGIO [Suspect]
     Indication: MULTIPLE SCLEROSIS
     Route: 048
     Dates: start: 20130203, end: 20130329

REACTIONS (8)
  - Blood pressure decreased [Unknown]
  - Tendon rupture [Unknown]
  - Insomnia [Unknown]
  - Heart rate increased [Unknown]
  - Vertigo [Unknown]
  - Tremor [Recovered/Resolved]
  - Palpitations [Unknown]
  - Nausea [Unknown]
